FAERS Safety Report 15579456 (Version 1)
Quarter: 2018Q4

REPORT INFORMATION
  Report Type: Spontaneous
  Country: FI (occurrence: FI)
  Receive Date: 20181102
  Receipt Date: 20181102
  Transmission Date: 20190205
  Serious: Yes (Hospitalization)
  Sender: FDA-Public Use
  Company Number: FI-GLAXOSMITHKLINE-FI2018199019

PATIENT
  Age: 4 Year
  Sex: Male

DRUGS (2)
  1. VENTOLINE EVOHALER [Suspect]
     Active Substance: ALBUTEROL SULFATE
     Indication: ASTHMA
     Dosage: UNK
     Route: 055
     Dates: start: 20181011, end: 20181011
  2. AMETOP [TETRACAINE] [Suspect]
     Active Substance: TETRACAINE
     Indication: LOCAL ANAESTHESIA
     Dosage: 4,ML,TOTAL
     Route: 061
     Dates: start: 20181011, end: 20181011

REACTIONS (4)
  - Dyspnoea [Recovered/Resolved]
  - Application site reaction [Recovered/Resolved]
  - Pallor [Recovered/Resolved]
  - Fatigue [Recovered/Resolved]

NARRATIVE: CASE EVENT DATE: 20181011
